FAERS Safety Report 23347488 (Version 1)
Quarter: 2023Q4

REPORT INFORMATION
  Report Type: Spontaneous
  Country: CN (occurrence: CN)
  Receive Date: 20231228
  Receipt Date: 20231228
  Transmission Date: 20240110
  Serious: Yes (Other)
  Sender: FDA-Public Use
  Company Number: CN-009507513-2312CHN009090

PATIENT
  Age: 79 Year
  Sex: Female

DRUGS (3)
  1. CILASTATIN SODIUM\IMIPENEM [Suspect]
     Active Substance: CILASTATIN SODIUM\IMIPENEM
     Indication: Pneumonia
     Dosage: 0.5 GRAM (1 BOTTLE), Q6H
     Route: 041
     Dates: start: 20231204, end: 20231209
  2. TYGACIL [Concomitant]
     Active Substance: TIGECYCLINE
     Indication: Pneumonia
     Dosage: 100 MILLILITER, Q12H
     Route: 041
     Dates: start: 20231202, end: 20231209
  3. AMIKACIN SULFATE [Concomitant]
     Active Substance: AMIKACIN SULFATE
     Indication: Pneumonia
     Dosage: 0.6 GRAM, Q24H
     Route: 041
     Dates: start: 20231124, end: 20231212

REACTIONS (13)
  - Seizure [Recovering/Resolving]
  - Encephalomalacia [Unknown]
  - Lacunar infarction [Unknown]
  - Cerebral atrophy [Unknown]
  - Heart rate abnormal [Unknown]
  - Blood pressure abnormal [Unknown]
  - Respiratory rate increased [Unknown]
  - Sinusitis [Unknown]
  - White matter lesion [Unknown]
  - Carbohydrate antigen 19-9 increased [Unknown]
  - Carbohydrate antigen 125 increased [Unknown]
  - Carbohydrate antigen 242 increased [Unknown]
  - Squamous cell carcinoma antigen increased [Unknown]

NARRATIVE: CASE EVENT DATE: 20231204
